FAERS Safety Report 4890796-7 (Version None)
Quarter: 2006Q1

REPORT INFORMATION
  Report Type: 
  Country: None (occurrence: None)
  Receive Date: 20060123
  Receipt Date: 20060112
  Transmission Date: 20060701
  Serious: Yes (Other)
  Sender: FDA-Public Use
  Company Number: 200610234BCC

PATIENT
  Age: 39 Year
  Sex: Female
  Weight: 46.2669 kg

DRUGS (3)
  1. ALEVE (CAPLET) [Suspect]
     Indication: RENAL PAIN
     Dosage: 440 MG, ONCE, ORAL
     Route: 048
     Dates: start: 20060111
  2. CARBATROL [Concomitant]
  3. PAXIL [Concomitant]

REACTIONS (1)
  - CONVULSION [None]
